FAERS Safety Report 20872168 (Version 1)
Quarter: 2022Q2

REPORT INFORMATION
  Report Type: Spontaneous
  Country: US (occurrence: US)
  Receive Date: 20220525
  Receipt Date: 20220525
  Transmission Date: 20220721
  Serious: Yes (Other)
  Sender: FDA-Public Use
  Company Number: US-PFIZER INC-202200714132

PATIENT
  Age: 48 Year
  Sex: Female

DRUGS (3)
  1. METHIMAZOLE [Interacting]
     Active Substance: METHIMAZOLE
     Indication: Hyperthyroidism
     Dosage: UNK
  2. ATENOLOL [Interacting]
     Active Substance: ATENOLOL
     Indication: Hyperthyroidism
     Dosage: UNK
  3. CYCLOBENZAPRINE [Interacting]
     Active Substance: CYCLOBENZAPRINE

REACTIONS (2)
  - Basedow^s disease [Recovered/Resolved]
  - Drug interaction [Recovered/Resolved]
